FAERS Safety Report 10771067 (Version 1)
Quarter: 2015Q1

REPORT INFORMATION
  Report Type: Spontaneous
  Country: US (occurrence: US)
  Receive Date: 20150206
  Receipt Date: 20150206
  Transmission Date: 20150721
  Serious: No
  Sender: FDA-Public Use
  Company Number: US-GLAXOSMITHKLINE-US2014GSK048904

PATIENT
  Sex: Female
  Weight: 55.3 kg

DRUGS (7)
  1. ZOFRAN [Suspect]
     Active Substance: ONDANSETRON HYDROCHLORIDE
     Indication: REGURGITATION
  2. ZOFRAN [Suspect]
     Active Substance: ONDANSETRON HYDROCHLORIDE
     Indication: NAUSEA
     Dosage: 4 MG, U
  3. SUTENT [Concomitant]
     Active Substance: SUNITINIB MALATE
     Dosage: 12.5 MG, QD
  4. SUTENT [Concomitant]
     Active Substance: SUNITINIB MALATE
     Dosage: 25 MG, QD
     Dates: start: 20141104
  5. ZOFRAN [Suspect]
     Active Substance: ONDANSETRON HYDROCHLORIDE
     Indication: VOMITING
     Dosage: 8 MG, U
  6. WARFARIN [Concomitant]
     Active Substance: WARFARIN
  7. ONDASETRON [Concomitant]
     Active Substance: ONDANSETRON

REACTIONS (2)
  - Weight decreased [Unknown]
  - Drug ineffective [Unknown]
